FAERS Safety Report 15429817 (Version 1)
Quarter: 2018Q3

REPORT INFORMATION
  Report Type: Spontaneous
  Country: US (occurrence: US)
  Receive Date: 20180926
  Receipt Date: 20180926
  Transmission Date: 20181010
  Serious: No
  Sender: FDA-Public Use
  Company Number: US-KVK-TECH, INC-2055360

PATIENT
  Age: 47 Year
  Sex: Female
  Weight: 63.64 kg

DRUGS (2)
  1. METHYLPHENIDATE HYDROCHLORIDE. [Suspect]
     Active Substance: METHYLPHENIDATE HYDROCHLORIDE
     Indication: HYPERSOMNIA
     Route: 048
     Dates: start: 201805, end: 201808
  2. TRAMADOL ER [Concomitant]
     Active Substance: TRAMADOL HYDROCHLORIDE
     Route: 048

REACTIONS (1)
  - Drug ineffective [Unknown]
